FAERS Safety Report 8935005 (Version 3)
Quarter: 2013Q1

REPORT INFORMATION
  Report Type: Report from Study
  Country: DE (occurrence: DE)
  Receive Date: 20121129
  Receipt Date: 20130215
  Transmission Date: 20140127
  Serious: Yes (Death, Hospitalization)
  Sender: FDA-Public Use
  Company Number: DE-ACTELION-A-US2012-75334

PATIENT
  Age: 43 Year
  Sex: Male

DRUGS (4)
  1. VENTAVIS [Suspect]
     Indication: PULMONARY ARTERIAL HYPERTENSION
     Dosage: 5.0 MCG, UNK
     Route: 055
     Dates: start: 20091123
  2. VOLIBRIS [Concomitant]
  3. REVATIO [Concomitant]
  4. OXYGEN [Concomitant]

REACTIONS (5)
  - Right ventricular failure [Fatal]
  - Cardiac failure [Recovering/Resolving]
  - Polycythaemia [Unknown]
  - Cyanosis [Unknown]
  - Oxygen saturation decreased [Unknown]
